FAERS Safety Report 5146340-2 (Version None)
Quarter: 2006Q4

REPORT INFORMATION
  Report Type: 
  Country: None (occurrence: None)
  Receive Date: 20061108
  Receipt Date: 20061030
  Transmission Date: 20070319
  Serious: Yes (Hospitalization)
  Sender: FDA-Public Use
  Company Number: FR-ABBOTT-06P-056-0348517-00

PATIENT
  Age: 32 Year
  Sex: Female

DRUGS (15)
  1. ZECLAR [Suspect]
     Indication: BACTERIAL INFECTION
     Route: 048
     Dates: start: 20051115
  2. EFAVIRENZ [Suspect]
     Indication: HIV INFECTION
     Route: 048
     Dates: start: 20051124, end: 20051216
  3. EMTRICITABINE [Suspect]
     Indication: HIV INFECTION
     Route: 048
     Dates: start: 20051124, end: 20051216
  4. SULFAMETHOXASONE TRIMETHOPRIME [Suspect]
     Indication: HIV INFECTION
     Route: 048
     Dates: start: 20051115
  5. RIFAMPICIN [Suspect]
     Indication: BACTERIAL INFECTION
     Route: 048
     Dates: start: 20051109, end: 20051216
  6. TENOFOVIR DISOPROXIL [Suspect]
     Indication: HIV INFECTION
     Route: 048
     Dates: start: 20051124, end: 20051216
  7. AMOXICILLIN [Concomitant]
     Indication: RESPIRATORY DISORDER
     Dates: start: 20050901
  8. AMOXICILLIN + CLAVULANATE POTASSIUM [Concomitant]
     Indication: DRUG USE FOR UNKNOWN INDICATION
     Dates: start: 20051018, end: 20051028
  9. CEFTRIAXONE [Concomitant]
     Indication: DRUG USE FOR UNKNOWN INDICATION
     Dates: start: 20051029, end: 20051107
  10. PYRAZINAMIDE [Concomitant]
     Indication: DRUG USE FOR UNKNOWN INDICATION
     Dates: start: 20051109, end: 20051115
  11. ISONIAZID [Concomitant]
     Indication: DRUG USE FOR UNKNOWN INDICATION
     Dates: start: 20051109, end: 20051118
  12. ETHAMBUTOL HYDROCHLORIDE [Concomitant]
     Indication: DRUG USE FOR UNKNOWN INDICATION
     Dates: start: 20051109, end: 20051203
  13. ETHAMBUTOL HYDROCHLORIDE [Concomitant]
     Dates: start: 20051216
  14. MOXIFLOXACIN HCL [Concomitant]
     Indication: DRUG USE FOR UNKNOWN INDICATION
     Dates: start: 20051203, end: 20051226
  15. OFLOXACIN [Concomitant]
     Indication: DRUG USE FOR UNKNOWN INDICATION
     Dates: start: 20051226

REACTIONS (7)
  - DRUG TOXICITY [None]
  - GRANULOMATOUS LIVER DISEASE [None]
  - HEPATIC ENZYME INCREASED [None]
  - HISTIOCYTOSIS HAEMATOPHAGIC [None]
  - IMMUNE RECONSTITUTION SYNDROME [None]
  - MYCOBACTERIAL INFECTION [None]
  - OESOPHAGEAL CANDIDIASIS [None]
